FAERS Safety Report 5192576-4 (Version None)
Quarter: 2006Q4

REPORT INFORMATION
  Report Type: 
  Country: None (occurrence: None)
  Receive Date: 20061220
  Receipt Date: 20061205
  Transmission Date: 20070319
  Serious: Yes (Other)
  Sender: FDA-Public Use
  Company Number: 2006SP004034

PATIENT
  Age: 56 Year
  Sex: Female
  Weight: 71.2147 kg

DRUGS (3)
  1. LUNESTA [Suspect]
     Indication: INSOMNIA
     Dosage: 1X; ORAL
     Route: 048
     Dates: start: 20060501, end: 20060501
  2. EFFEXOR [Concomitant]
  3. XANAX [Concomitant]

REACTIONS (2)
  - HALLUCINATION [None]
  - LOSS OF CONSCIOUSNESS [None]
